FAERS Safety Report 25327683 (Version 2)
Quarter: 2025Q2

REPORT INFORMATION
  Report Type: Report from Study
  Country: JP (occurrence: JP)
  Receive Date: 20250517
  Receipt Date: 20250521
  Transmission Date: 20250716
  Serious: Yes (Other)
  Sender: ALEXION PHARMACEUTICALS
  Company Number: JP-ASTRAZENECA-202505JPN007207JP

PATIENT
  Age: 13 Year
  Weight: 56.1 kg

DRUGS (1)
  1. KOSELUGO [Suspect]
     Active Substance: SELUMETINIB
     Indication: Neurofibromatosis
     Dosage: 80 MILLIGRAM, QD

REACTIONS (6)
  - Tricuspid valve incompetence [Unknown]
  - Pulmonary valve incompetence [Unknown]
  - Ejection fraction decreased [Unknown]
  - Blood creatine phosphokinase increased [Unknown]
  - Paronychia [Unknown]
  - Acne [Recovering/Resolving]
